FAERS Safety Report 5860772-6 (Version None)
Quarter: 2008Q3

REPORT INFORMATION
  Report Type: 
  Country: None (occurrence: None)
  Receive Date: 20080827
  Receipt Date: 20080122
  Transmission Date: 20090109
  Serious: No
  Sender: FDA-Public Use
  Company Number: US-ABBOTT-07P-163-0425517-00

PATIENT
  Sex: Male
  Weight: 88.53 kg

DRUGS (8)
  1. COATED PDS [Suspect]
     Indication: BLOOD CHOLESTEROL INCREASED
     Route: 048
     Dates: start: 20071104, end: 20071120
  2. ATENOLOL [Concomitant]
     Indication: BLOOD PRESSURE
  3. UROXETROL [Concomitant]
     Indication: PROSTATOMEGALY
  4. OXYCODONE HCL [Concomitant]
     Indication: BACK PAIN
  5. ASCORBIC ACID [Concomitant]
     Indication: VITAMIN SUPPLEMENTATION
  6. VITAMIN E [Concomitant]
     Indication: VITAMIN SUPPLEMENTATION
  7. SELENIUM [Concomitant]
     Indication: VITAMIN SUPPLEMENTATION
  8. LICOPENE [Concomitant]
     Indication: PROSTATOMEGALY

REACTIONS (4)
  - BURNING SENSATION [None]
  - PARAESTHESIA [None]
  - PRURITUS [None]
  - PULSE PRESSURE INCREASED [None]
